FAERS Safety Report 6390643-0 (Version None)
Quarter: 2009Q4

REPORT INFORMATION
  Report Type: 
  Country: None (occurrence: None)
  Receive Date: 20091006
  Receipt Date: 20091005
  Transmission Date: 20100525
  Serious: Yes (Other)
  Sender: FDA-Public Use
  Company Number: US-ROXANE LABORATORIES, INC.-2009-RO-01027RO

PATIENT
  Sex: Male
  Weight: 104 kg

DRUGS (4)
  1. LIDOCAINE [Suspect]
     Indication: STOMATITIS
  2. PEGASYS [Suspect]
     Indication: HEPATITIS C
     Dates: start: 20090201
  3. RIBAVIRIN [Suspect]
     Indication: HEPATITIS C
     Dosage: 1200 MG
     Dates: start: 20090201
  4. OXYCODONE [Suspect]
     Indication: ANALGESIC THERAPY
     Dates: end: 20090601

REACTIONS (3)
  - DEPRESSION [None]
  - DRUG INEFFECTIVE [None]
  - VIOLENCE-RELATED SYMPTOM [None]
